FAERS Safety Report 13457706 (Version 1)
Quarter: 2017Q2

REPORT INFORMATION
  Report Type: Spontaneous
  Country: JP (occurrence: JP)
  Receive Date: 20170419
  Receipt Date: 20170419
  Transmission Date: 20170830
  Serious: Yes (Death, Other)
  Sender: FDA-Public Use
  Company Number: JP-ROCHE-1891525

PATIENT
  Age: 46 Year
  Sex: Female
  Weight: 57 kg

DRUGS (7)
  1. CARBOPLATIN. [Suspect]
     Active Substance: CARBOPLATIN
     Indication: CERVIX CARCINOMA
     Route: 041
     Dates: start: 20160602, end: 20161027
  2. AVASTIN [Suspect]
     Active Substance: BEVACIZUMAB
     Indication: CERVIX CARCINOMA
     Route: 041
     Dates: start: 20160602, end: 20161027
  3. CELECOX [Concomitant]
     Active Substance: CELECOXIB
     Indication: ARTHRALGIA
     Dosage: DOSAGE IS UNCERTAIN.
     Route: 065
     Dates: start: 20150415, end: 20170131
  4. PACLITAXEL. [Suspect]
     Active Substance: PACLITAXEL
     Indication: CERVIX CARCINOMA
     Route: 041
     Dates: start: 20160602, end: 20161027
  5. CALONAL [Concomitant]
     Active Substance: ACETAMINOPHEN
     Indication: ARTHRALGIA
     Dosage: DOSAGE IS UNCERTAIN.
     Route: 065
     Dates: start: 20160803, end: 20170131
  6. AVASTIN [Suspect]
     Active Substance: BEVACIZUMAB
     Indication: CERVIX CARCINOMA
     Route: 041
     Dates: start: 20161213, end: 20170110
  7. LOXOPROFEN [Concomitant]
     Active Substance: LOXOPROFEN
     Indication: ABDOMINAL PAIN LOWER
     Dosage: DOSAGE IS UNCERTAIN.
     Route: 065
     Dates: start: 20150501, end: 20170131

REACTIONS (6)
  - Cervix carcinoma [Fatal]
  - Melaena [Not Recovered/Not Resolved]
  - Herpes zoster [Recovered/Resolved]
  - Cerebral infarction [Fatal]
  - Post herpetic neuralgia [Recovering/Resolving]
  - Eustachian tube patulous [Not Recovered/Not Resolved]

NARRATIVE: CASE EVENT DATE: 20160606
